FAERS Safety Report 9038906 (Version 1)
Quarter: 2013Q1

REPORT INFORMATION
  Report Type: Spontaneous
  Country: US (occurrence: None)
  Receive Date: 20130123
  Receipt Date: 20130123
  Transmission Date: 20140127
  Serious: Yes (Hospitalization)
  Sender: FDA-Public Use
  Company Number: None

PATIENT
  Age: 71 Year
  Sex: Male
  Weight: 78.93 kg

DRUGS (1)
  1. PRADDAXA [Suspect]
     Indication: BODY TEMPERATURE NORMAL
     Dates: start: 20120426, end: 20121120

REACTIONS (2)
  - Upper gastrointestinal haemorrhage [None]
  - Drug administration error [None]
